FAERS Safety Report 12217523 (Version 2)
Quarter: 2016Q3

REPORT INFORMATION
  Report Type: Spontaneous
  Country: JP (occurrence: JP)
  Receive Date: 20160329
  Receipt Date: 20160804
  Transmission Date: 20161109
  Serious: Yes (Other)
  Sender: FDA-Public Use
  Company Number: JP-TEVA-646209ISR

PATIENT
  Age: 74 Year
  Sex: Male
  Weight: 49 kg

DRUGS (16)
  1. MS-TWICELON [Concomitant]
     Dosage: 150 MILLIGRAM DAILY;
     Route: 048
     Dates: start: 20151102
  2. COCARL [Concomitant]
     Active Substance: ACETAMINOPHEN
     Indication: CANCER PAIN
     Dosage: 1500 MILLIGRAM DAILY;
     Route: 048
  3. FAMOTIDINE D [Concomitant]
     Active Substance: FAMOTIDINE
     Indication: PROPHYLAXIS AGAINST GASTROINTESTINAL ULCER
     Dosage: 20 MILLIGRAM DAILY;
     Route: 048
  4. OPSO [Concomitant]
     Active Substance: MORPHINE HYDROCHLORIDE
     Indication: BREAKTHROUGH PAIN
     Route: 048
  5. DECADRON [Concomitant]
     Active Substance: DEXAMETHASONE
     Indication: MALAISE
     Dosage: 2 MILLIGRAM DAILY;
     Route: 048
  6. ZOPICLONE [Concomitant]
     Active Substance: ZOPICLONE
     Indication: INSOMNIA
     Dosage: 7.5 MILLIGRAM DAILY;
     Route: 048
  7. MS-TWICELON [Concomitant]
     Indication: CANCER PAIN
     Dosage: 120 MILLIGRAM DAILY;
     Route: 048
     Dates: end: 20151101
  8. RISPERIDONE. [Concomitant]
     Active Substance: RISPERIDONE
     Indication: INSOMNIA
     Dosage: 1 MILLIGRAM DAILY;
     Route: 048
  9. ALPRAZOLAM. [Suspect]
     Active Substance: ALPRAZOLAM
     Indication: ANXIETY
     Dosage: 0.4 MG - 0.8 MG
     Route: 048
  10. PURSENNID [Concomitant]
     Active Substance: SENNOSIDES A AND B
     Indication: CONSTIPATION PROPHYLAXIS
     Dosage: 36 MILLIGRAM DAILY;
     Route: 048
  11. E-FEN BUCCAL [Suspect]
     Active Substance: FENTANYL CITRATE
     Indication: BREAKTHROUGH PAIN
     Dosage: 0-300 MICROGRAM
     Route: 002
     Dates: start: 20151029, end: 20151104
  12. MAGMITT [Concomitant]
     Active Substance: MAGNESIUM OXIDE
     Indication: CONSTIPATION PROPHYLAXIS
     Dosage: 1980 MILLIGRAM DAILY;
     Route: 048
  13. AMLODIN OD [Concomitant]
     Active Substance: AMLODIPINE BESYLATE
     Indication: HYPERTENSION
     Dosage: 2.5 MILLIGRAM DAILY;
     Route: 048
  14. FENTOS [Concomitant]
     Active Substance: FENTANYL
     Indication: CANCER PAIN
     Dosage: 5 MILLIGRAM DAILY;
     Route: 062
  15. GLIMEPIRIDE OD [Concomitant]
     Indication: DIABETES MELLITUS
     Dosage: 1 MILLIGRAM DAILY;
     Route: 048
  16. EQUA [Concomitant]
     Active Substance: VILDAGLIPTIN
     Indication: DIABETES MELLITUS
     Dosage: 100 MILLIGRAM DAILY;
     Route: 048

REACTIONS (2)
  - Tooth loss [Not Recovered/Not Resolved]
  - Delirium [Recovering/Resolving]

NARRATIVE: CASE EVENT DATE: 20151031
